FAERS Safety Report 18591859 (Version 1)
Quarter: 2020Q4

REPORT INFORMATION
  Report Type: Spontaneous
  Country: US (occurrence: US)
  Receive Date: 20201208
  Receipt Date: 20201208
  Transmission Date: 20210114
  Serious: Yes (Disabling)
  Sender: FDA-Public Use
  Company Number: US-SA-2020SA345819

PATIENT

DRUGS (1)
  1. ZANTAC 150 MAXIMUM STRENGTH [Suspect]
     Active Substance: RANITIDINE HYDROCHLORIDE
     Indication: DYSPEPSIA
     Dosage: UNK, BID
     Dates: end: 2017

REACTIONS (6)
  - Dyspepsia [Not Recovered/Not Resolved]
  - Toothache [Recovered/Resolved]
  - Drug ineffective [Not Recovered/Not Resolved]
  - Chest pain [Recovered/Resolved]
  - Impaired work ability [Recovered/Resolved]
  - Abdominal pain [Not Recovered/Not Resolved]
